FAERS Safety Report 6787412-6 (Version None)
Quarter: 2010Q2

REPORT INFORMATION
  Report Type: 
  Country: None (occurrence: None)
  Receive Date: 20100623
  Receipt Date: 20070507
  Transmission Date: 20101027
  Serious: Yes (Other)
  Sender: FDA-Public Use
  Company Number: US-PFIZER INC-2006112690

PATIENT
  Sex: Female
  Weight: 99.8 kg

DRUGS (12)
  1. SUTENT [Suspect]
     Dosage: EVERY DAY FOR 4 WEEKS
     Route: 048
     Dates: start: 20060810
  2. AVANDIA [Concomitant]
  3. ZOLOFT [Concomitant]
  4. ZETIA [Concomitant]
  5. METFORMIN HCL [Concomitant]
  6. SYNTHROID [Concomitant]
  7. TRICOR [Concomitant]
  8. MORPHINE [Concomitant]
  9. PRILOSEC [Concomitant]
  10. XANAX [Concomitant]
  11. LASIX [Concomitant]
  12. POTASSIUM [Concomitant]

REACTIONS (2)
  - PALMAR-PLANTAR ERYTHRODYSAESTHESIA SYNDROME [None]
  - WEIGHT INCREASED [None]
